FAERS Safety Report 21651983 (Version 1)
Quarter: 2022Q4

REPORT INFORMATION
  Report Type: Spontaneous
  Country: US (occurrence: None)
  Receive Date: 20221125
  Receipt Date: 20221125
  Transmission Date: 20230113
  Serious: Yes (Life-Threatening)
  Sender: FDA-Public Use
  Company Number: None

PATIENT
  Age: 88 Year
  Sex: Female
  Weight: 67.5 kg

DRUGS (1)
  1. BEVACIZUMAB [Suspect]
     Active Substance: BEVACIZUMAB
     Indication: Macular degeneration
     Dosage: OTHER FREQUENCY : EVERY 30-60 DAYS;?
     Route: 031

REACTIONS (3)
  - Cardiac failure congestive [None]
  - Syncope [None]
  - Fall [None]

NARRATIVE: CASE EVENT DATE: 20191112
